FAERS Safety Report 5834764-7 (Version None)
Quarter: 2008Q4

REPORT INFORMATION
  Report Type: 
  Country: None (occurrence: None)
  Receive Date: 20080801
  Receipt Date: 20080721
  Transmission Date: 20090506
  Serious: Yes (Hospitalization, Other)
  Sender: FDA-Public Use
  Company Number: GXKR2008JP06874

PATIENT
  Age: 68 Year
  Sex: Female

DRUGS (4)
  1. METHYLPREDNISOLONE [Suspect]
     Indication: STILL'S DISEASE ADULT ONSET
     Dosage: 1000 MG, INTRAVENOUS
     Route: 042
  2. PREDNISOLONE [Suspect]
     Indication: STILL'S DISEASE ADULT ONSET
     Dosage: 60 MG, QD, ORAL
     Route: 048
  3. CYCLOSPORINE [Suspect]
     Indication: STILL'S DISEASE ADULT ONSET
     Dosage: ORAL
     Route: 048
  4. CYCLOPHOSPHAMIDE [Suspect]
     Indication: JUVENILE ARTHRITIS
     Dosage: INTRAVENOUS
     Route: 042

REACTIONS (7)
  - BLOOD IMMUNOGLOBULIN G DECREASED [None]
  - BRAIN ABSCESS [None]
  - HEADACHE [None]
  - LYMPHOCYTE COUNT DECREASED [None]
  - NOCARDIOSIS [None]
  - TREATMENT FAILURE [None]
  - VOMITING [None]
